FAERS Safety Report 8993391 (Version 1)
Quarter: 2013Q1

REPORT INFORMATION
  Report Type: Spontaneous
  Country: US (occurrence: US)
  Receive Date: 20130102
  Receipt Date: 20130102
  Transmission Date: 20140127
  Serious: Yes (Hospitalization, Other)
  Sender: FDA-Public Use
  Company Number: CHPA2012US025640

PATIENT
  Age: 76 Year
  Sex: Male

DRUGS (1)
  1. EXCEDRIN EXTRA STRENGTH [Suspect]
     Dosage: 1 DF DAILY
     Route: 048
     Dates: start: 1971, end: 2011

REACTIONS (4)
  - Arterial occlusive disease [Recovered/Resolved]
  - Therapeutic response unexpected [Unknown]
  - Underdose [Unknown]
  - Incorrect drug administration duration [Unknown]
